FAERS Safety Report 8479468-X (Version None)
Quarter: 2012Q2

REPORT INFORMATION
  Report Type: 
  Country: None (occurrence: None)
  Receive Date: 20120629
  Receipt Date: 20120619
  Transmission Date: 20120825
  Serious: No
  Sender: FDA-Public Use
  Company Number: US-CELGENEUS-163-21880-12041117

PATIENT
  Sex: Male
  Weight: 100.33 kg

DRUGS (10)
  1. CARDIZEM LA [Concomitant]
     Dosage: 240 MILLIGRAM
     Route: 065
     Dates: start: 20110912
  2. PRADAXA [Concomitant]
     Route: 065
  3. REVLIMID [Suspect]
     Dosage: 25 MILLIGRAM
     Route: 048
     Dates: start: 20120209, end: 20120315
  4. LISINOPRIL [Concomitant]
     Indication: HYPERTENSION
     Dosage: 20 MILLIGRAM
     Route: 065
     Dates: start: 20110929
  5. TRANSFUSION [Concomitant]
     Route: 041
  6. REVLIMID [Suspect]
     Indication: MULTIPLE MYELOMA
     Dosage: 25 MILLIGRAM
     Route: 048
     Dates: start: 20081101
  7. DILTIAZEM HCL [Concomitant]
     Route: 065
  8. CYTOXAN [Concomitant]
     Dosage: 1
     Route: 065
     Dates: start: 20120412
  9. CYCLOPHOSPHAMIDE [Concomitant]
     Dosage: 50 MILLIGRAM
     Route: 048
  10. COUMADIN [Concomitant]
     Dosage: 2.5 MILLIGRAM
     Route: 065
     Dates: start: 20120510

REACTIONS (5)
  - PARAESTHESIA [None]
  - INSOMNIA [None]
  - CHILLS [None]
  - PAIN IN EXTREMITY [None]
  - HYPOAESTHESIA [None]
